FAERS Safety Report 12101424 (Version 3)
Quarter: 2016Q1

REPORT INFORMATION
  Report Type: Spontaneous
  Country: US (occurrence: US)
  Receive Date: 20160222
  Receipt Date: 20160309
  Transmission Date: 20160526
  Serious: No
  Sender: FDA-Public Use
  Company Number: US-SHIRE-US201601719

PATIENT
  Age: 9 Year
  Sex: Male

DRUGS (1)
  1. VYVANSE [Suspect]
     Active Substance: LISDEXAMFETAMINE DIMESYLATE
     Indication: ATTENTION DEFICIT/HYPERACTIVITY DISORDER
     Dosage: 35 MG BY DILUTING 70 MG CAPSULES IN 7 OUNCES OF WATER, 1X/DAY:QD
     Route: 048

REACTIONS (12)
  - Wrong technique in product usage process [Unknown]
  - Increased appetite [Recovered/Resolved]
  - Decreased appetite [Not Recovered/Not Resolved]
  - Hunger [Recovered/Resolved]
  - Soliloquy [Recovered/Resolved]
  - Negativism [Recovered/Resolved]
  - Disturbance in social behaviour [Recovered/Resolved]
  - Repetitive speech [Recovered/Resolved]
  - Product quality issue [Unknown]
  - Inappropriate affect [Recovered/Resolved]
  - Psychotic disorder [Unknown]
  - Inappropriate schedule of drug administration [Unknown]

NARRATIVE: CASE EVENT DATE: 2016
